FAERS Safety Report 18842698 (Version 3)
Quarter: 2021Q2

REPORT INFORMATION
  Report Type: Spontaneous
  Country: US (occurrence: US)
  Receive Date: 20210204
  Receipt Date: 20210405
  Transmission Date: 20210717
  Serious: Yes (Other)
  Sender: FDA-Public Use
  Company Number: US-JNJFOC-20210200784

PATIENT
  Age: 47 Year
  Sex: Female
  Weight: 86.26 kg

DRUGS (11)
  1. REMICADE [Suspect]
     Active Substance: INFLIXIMAB
     Indication: RHEUMATOID ARTHRITIS
     Dosage: INFUSED 150 MG OUT OF 300 MG
     Route: 042
     Dates: start: 20170117
  2. REMICADE [Suspect]
     Active Substance: INFLIXIMAB
     Route: 042
     Dates: start: 20210128, end: 20210211
  3. AMBIEN [Concomitant]
     Active Substance: ZOLPIDEM TARTRATE
     Route: 048
  4. PREDNISONE. [Concomitant]
     Active Substance: PREDNISONE
     Dosage: 1?2 TABLETS AS NEEDED
     Route: 048
     Dates: start: 20200331
  5. METHOTREXATE. [Concomitant]
     Active Substance: METHOTREXATE
     Dosage: 6 TABLETS WEEKLY
     Route: 048
     Dates: start: 20210104
  6. FOLIC ACID. [Concomitant]
     Active Substance: FOLIC ACID
     Dosage: 2 TABLETS
     Route: 048
     Dates: start: 20200914
  7. REMICADE [Suspect]
     Active Substance: INFLIXIMAB
     Dosage: TOTAL NUMBER OF DOSES:20
     Route: 042
     Dates: start: 20170711, end: 20210128
  8. PANTOPRAZOLE SODIUM. [Concomitant]
     Active Substance: PANTOPRAZOLE SODIUM
     Route: 048
  9. GABAPENTIN. [Concomitant]
     Active Substance: GABAPENTIN
     Route: 048
  10. AMLODIPINE BESYLATE. [Concomitant]
     Active Substance: AMLODIPINE BESYLATE
     Route: 048
  11. NORCO [Concomitant]
     Active Substance: ACETAMINOPHEN\HYDROCODONE BITARTRATE
     Indication: PAIN
     Dosage: 10 ? 325 MG, 1 TABLET EVERY 4?6 HOURS
     Route: 048

REACTIONS (7)
  - Hypersensitivity [Recovered/Resolved]
  - Urinary tract infection [Unknown]
  - Alanine aminotransferase increased [Unknown]
  - Underdose [Unknown]
  - Infusion related reaction [Recovered/Resolved]
  - Upper respiratory tract infection [Unknown]
  - Rheumatoid arthritis [Unknown]

NARRATIVE: CASE EVENT DATE: 201905
